FAERS Safety Report 6554999-8 (Version None)
Quarter: 2010Q1

REPORT INFORMATION
  Report Type: 
  Country: None (occurrence: None)
  Receive Date: 20100126
  Receipt Date: 20100126
  Transmission Date: 20100710
  Serious: Yes (Other)
  Sender: FDA-Public Use
  Company Number: None

PATIENT
  Age: 63 Year
  Sex: Male
  Weight: 68.0396 kg

DRUGS (1)
  1. MINOCIN [Suspect]
     Indication: RHEUMATOID ARTHRITIS
     Dosage: 100 MG TWICE DAILY PO
     Route: 048
     Dates: start: 20030201, end: 20090601

REACTIONS (4)
  - MIDDLE INSOMNIA [None]
  - MUSCLE SPASMS [None]
  - MYALGIA [None]
  - SCREAMING [None]
